FAERS Safety Report 4993532-9 (Version None)
Quarter: 2006Q2

REPORT INFORMATION
  Report Type: 
  Country: None (occurrence: None)
  Receive Date: 20060503
  Receipt Date: 20060503
  Transmission Date: 20061013
  Serious: Yes (Hospitalization)
  Sender: FDA-Public Use
  Company Number: None

PATIENT
  Age: 81 Year
  Sex: Male
  Weight: 73.8 kg

DRUGS (8)
  1. ZOCOR [Suspect]
     Indication: HYPERLIPIDAEMIA
     Dosage: 80 MG Q.DAY PO
     Route: 048
     Dates: start: 20050301, end: 20060425
  2. DIGOXIN [Concomitant]
  3. TOPROL-XL [Concomitant]
  4. MEGACE [Concomitant]
  5. PENTOXIFYLILINE CR [Concomitant]
  6. DARVOCET-N 100 [Concomitant]
  7. PLAVIX [Concomitant]
  8. KLONOPIN [Concomitant]

REACTIONS (1)
  - RHABDOMYOLYSIS [None]
